FAERS Safety Report 8902836 (Version 1)
Quarter: 2012Q4

REPORT INFORMATION
  Report Type: 
  Country: RU (occurrence: RU)
  Receive Date: 20121112
  Receipt Date: 20121112
  Transmission Date: 20130627
  Serious: Yes (Death)
  Sender: FDA-Public Use
  Company Number: RU-BRISTOL-MYERS SQUIBB COMPANY-17089533

PATIENT
  Sex: Male

DRUGS (2)
  1. HYDREA [Suspect]
     Route: 048
     Dates: start: 20120307, end: 20120512
  2. ENALAPRIL [Concomitant]
     Indication: HYPERTENSION
     Dates: start: 2007, end: 2012

REACTIONS (1)
  - Disease progression [Fatal]
